FAERS Safety Report 12449011 (Version 1)
Quarter: 2016Q2

REPORT INFORMATION
  Report Type: Spontaneous
  Country: IT (occurrence: IT)
  Receive Date: 20160608
  Receipt Date: 20160608
  Transmission Date: 20160815
  Serious: Yes (Hospitalization)
  Sender: FDA-Public Use
  Company Number: IT-PFIZER INC-2016261514

PATIENT
  Age: 69 Year
  Sex: Male

DRUGS (2)
  1. ZYPREXA [Concomitant]
     Active Substance: OLANZAPINE
  2. LYRICA [Suspect]
     Active Substance: PREGABALIN
     Dosage: 75 MG, UNK

REACTIONS (6)
  - Coma [Unknown]
  - Sopor [Unknown]
  - Peripheral coldness [Not Recovered/Not Resolved]
  - Lung infection [Unknown]
  - Dysgraphia [Not Recovered/Not Resolved]
  - Hyperhidrosis [Not Recovered/Not Resolved]
